FAERS Safety Report 18020235 (Version 1)
Quarter: 2020Q3

REPORT INFORMATION
  Report Type: Spontaneous
  Country: US (occurrence: US)
  Receive Date: 20200714
  Receipt Date: 20200714
  Transmission Date: 20201103
  Serious: Yes (Other)
  Sender: FDA-Public Use
  Company Number: US-GLAXOSMITHKLINE-US2020123433

PATIENT
  Sex: Male

DRUGS (3)
  1. NUCALA [Suspect]
     Active Substance: MEPOLIZUMAB
     Indication: ASTHMA
  2. NUCALA [Suspect]
     Active Substance: MEPOLIZUMAB
     Indication: ECZEMA
     Dosage: UNK
     Route: 058
  3. DUPIXENT [Concomitant]
     Active Substance: DUPILUMAB

REACTIONS (10)
  - Pertussis [Unknown]
  - Influenza [Unknown]
  - Product use in unapproved indication [Unknown]
  - Burning sensation [Not Recovered/Not Resolved]
  - Food allergy [Not Recovered/Not Resolved]
  - Staphylococcal infection [Recovered/Resolved]
  - Sleep disorder due to a general medical condition [Unknown]
  - Off label use [Unknown]
  - Blister [Recovered/Resolved]
  - Pruritus [Recovered/Resolved]

NARRATIVE: CASE EVENT DATE: 2017
